FAERS Safety Report 7221432-2 (Version None)
Quarter: 2011Q1

REPORT INFORMATION
  Report Type: 
  Country: None (occurrence: None)
  Receive Date: 20110112
  Receipt Date: 20110104
  Transmission Date: 20110831
  Serious: Yes (Hospitalization)
  Sender: FDA-Public Use
  Company Number: FR-ELI_LILLY_AND_COMPANY-FR201101000884

PATIENT
  Age: 74 Year
  Sex: Female

DRUGS (3)
  1. TRIATEC [Concomitant]
     Dosage: UNK, UNKNOWN
     Route: 065
  2. FORTEO [Suspect]
     Indication: OSTEOPOROSIS
     Dosage: 20 UG, DAILY (1/D)
     Route: 058
     Dates: start: 20100706
  3. TAHOR [Concomitant]
     Dosage: UNK, UNKNOWN
     Route: 065
     Dates: start: 20101201

REACTIONS (3)
  - HUMERUS FRACTURE [None]
  - FALL [None]
  - HYPERTENSION [None]
